FAERS Safety Report 4928934-X (Version None)
Quarter: 2006Q1

REPORT INFORMATION
  Report Type: 
  Country: None (occurrence: None)
  Receive Date: 20060228
  Receipt Date: 20060228
  Transmission Date: 20060701
  Serious: Yes (Hospitalization)
  Sender: FDA-Public Use
  Company Number: None

PATIENT
  Sex: Male
  Weight: 76.8 kg

DRUGS (13)
  1. LENALIDOMIDE     15 MG/M2     CELGENE [Suspect]
     Indication: GLIOBLASTOMA MULTIFORME
     Dosage: 15 MG/M2   QD X 21 DAYS  PO
     Route: 048
     Dates: start: 20060207, end: 20060220
  2. LENALIDOMIDE     15 MG/M2     CELGENE [Suspect]
     Indication: GLIOBLASTOMA MULTIFORME
     Dosage: 15 MG/M2   QD X 21 DAYS  PO
     Route: 048
     Dates: start: 20060222, end: 20060227
  3. DOXAZOSIN [Concomitant]
  4. SINGULAIR [Concomitant]
  5. FOLIC ACID [Concomitant]
  6. PREVACID [Concomitant]
  7. SODIUM CHLORIDE [Concomitant]
  8. KEPPRA [Concomitant]
  9. URECHOLINE [Concomitant]
  10. ASPIRIN [Concomitant]
  11. DECADRON SRC [Concomitant]
  12. BACTRIM [Concomitant]
  13. GLYCOLAX [Concomitant]

REACTIONS (7)
  - APHASIA [None]
  - DIARRHOEA [None]
  - HEADACHE [None]
  - NAUSEA [None]
  - NEUROPATHY [None]
  - URINARY TRACT INFECTION [None]
  - VOMITING [None]
